FAERS Safety Report 6295796-0 (Version None)
Quarter: 2009Q3

REPORT INFORMATION
  Report Type: 
  Country: None (occurrence: None)
  Receive Date: 20090804
  Receipt Date: 20090727
  Transmission Date: 20100115
  Serious: Yes (Other)
  Sender: FDA-Public Use
  Company Number: US-ASTRAZENECA-2009UW21361

PATIENT
  Sex: Female

DRUGS (3)
  1. ARIMIDEX [Suspect]
     Indication: BREAST CANCER
     Route: 048
     Dates: start: 20060201, end: 20081001
  2. FASLODEX [Suspect]
     Indication: BREAST CANCER
     Route: 030
     Dates: start: 20090403
  3. TAMOXIFEN CITRATE [Suspect]
     Dates: start: 20081001, end: 20090201

REACTIONS (5)
  - BACK PAIN [None]
  - CARBOHYDRATE ANTIGEN 15-3 INCREASED [None]
  - CARBOHYDRATE ANTIGEN 27.29 INCREASED [None]
  - DRUG INEFFECTIVE [None]
  - NEOPLASM PROGRESSION [None]
